FAERS Safety Report 16209189 (Version 3)
Quarter: 2019Q2

REPORT INFORMATION
  Report Type: Report from Study
  Country: US (occurrence: US)
  Receive Date: 20190417
  Receipt Date: 20190529
  Transmission Date: 20190711
  Serious: Yes (Hospitalization)
  Sender: FDA-Public Use
  Company Number: US-PFIZER INC-2019158615

PATIENT
  Age: 15 Year
  Sex: Male
  Weight: 71 kg

DRUGS (22)
  1. VINCRISTINE SULFATE. [Suspect]
     Active Substance: VINCRISTINE SULFATE
     Dosage: DAY 43-1.49 MG/M2/DOSE (CONSOLIDATION)
     Route: 042
     Dates: start: 20190405
  2. FLUCONAZOLE. [Concomitant]
     Active Substance: FLUCONAZOLE
     Dosage: UNK
     Dates: start: 20190118
  3. METHOTREXATE SODIUM. [Suspect]
     Active Substance: METHOTREXATE SODIUM
     Indication: ACUTE LYMPHOCYTIC LEUKAEMIA
     Dosage: DAY 8-15 MG (10 ML OF 1.5 MG/ML) (INDUCTION)
     Route: 037
     Dates: start: 20190125
  4. CYCLOPHOSPHAMIDE. [Suspect]
     Active Substance: CYCLOPHOSPHAMIDE
     Dosage: DAY 29 - 1000 MG/M2/DOSE (CONSOLIDATION)
     Route: 042
     Dates: start: 20190322
  5. PEGASPARGASE [Suspect]
     Active Substance: PEGASPARGASE
     Dosage: 4500 IU, Q2H
     Route: 042
  6. VINCRISTINE SULFATE. [Suspect]
     Active Substance: VINCRISTINE SULFATE
     Dosage: DAY 15-1.49 MG/M2/DOSE (INDUCTION)
     Route: 042
     Dates: start: 20190201
  7. METHOTREXATE SODIUM. [Suspect]
     Active Substance: METHOTREXATE SODIUM
     Dosage: DAY 15-15 MG (CONSOLIDATION)
     Route: 037
     Dates: start: 20190308
  8. INCB018424 [Suspect]
     Active Substance: RUXOLITINIB
     Indication: ACUTE LYMPHOCYTIC LEUKAEMIA
     Dosage: 90 MG (THREE 5MG TABLETS AND THREE 25MG TABLETS) BID FOR 14 DAYS
     Route: 048
     Dates: start: 20190222
  9. METHOTREXATE SODIUM. [Suspect]
     Active Substance: METHOTREXATE SODIUM
     Dosage: DAY 1-15 MG (CONSOLIDATION)
     Route: 037
     Dates: start: 20190222
  10. CYCLOPHOSPHAMIDE. [Suspect]
     Active Substance: CYCLOPHOSPHAMIDE
     Indication: ACUTE LYMPHOCYTIC LEUKAEMIA
     Dosage: DAY 1 - 1000 MG/M2/DOSE (CONSOLIDATION)
     Route: 042
     Dates: start: 20190222
  11. VINCRISTINE SULFATE. [Suspect]
     Active Substance: VINCRISTINE SULFATE
     Indication: ACUTE LYMPHOCYTIC LEUKAEMIA
     Dosage: DAY 1-1.49 MG/M2/DOSE (INDUCTION),
     Route: 042
     Dates: start: 20190118
  12. VINCRISTINE SULFATE. [Suspect]
     Active Substance: VINCRISTINE SULFATE
     Dosage: DAY 50-1.49 MG/M2/DOSE (CONSOLIDATION)
     Route: 042
     Dates: start: 20190412
  13. METHOTREXATE SODIUM. [Suspect]
     Active Substance: METHOTREXATE SODIUM
     Dosage: DAY 29-15 MG (INDUCTION)
     Route: 037
     Dates: start: 20190215
  14. CYTARABINE. [Suspect]
     Active Substance: CYTARABINE
     Indication: ACUTE LYMPHOCYTIC LEUKAEMIA
     Dosage: 134 MG, UNK
     Route: 042
     Dates: start: 20190222
  15. METHOTREXATE SODIUM. [Suspect]
     Active Substance: METHOTREXATE SODIUM
     Dosage: DAY 8-15 MG (CONSOLIDATION)
     Route: 037
     Dates: start: 20190301
  16. PEGASPARGASE [Suspect]
     Active Substance: PEGASPARGASE
     Indication: ACUTE LYMPHOCYTIC LEUKAEMIA
     Dosage: 60 MG, UNK
     Route: 042
     Dates: start: 20190121
  17. BACTRIM [Concomitant]
     Active Substance: SULFAMETHOXAZOLE\TRIMETHOPRIM
     Dosage: UNK
     Dates: start: 20190222
  18. VINCRISTINE SULFATE. [Suspect]
     Active Substance: VINCRISTINE SULFATE
     Dosage: DAY 8-1.49 MG/M2/DOSE (INDUCTION)
     Route: 042
     Dates: start: 20190125
  19. VINCRISTINE SULFATE. [Suspect]
     Active Substance: VINCRISTINE SULFATE
     Dosage: DAY 22-1.49 MG/M2/DOSE (INDUCTION)
     Route: 042
     Dates: start: 20190208
  20. VINCRISTINE SULFATE. [Suspect]
     Active Substance: VINCRISTINE SULFATE
     Dosage: DAY 15-1.49 MG/M2/DOSE (CONSOLIDATION)
     Route: 042
     Dates: start: 20190308
  21. VINCRISTINE SULFATE. [Suspect]
     Active Substance: VINCRISTINE SULFATE
     Dosage: DAY 22-1.49 MG/M2/DOSE (CONSOLIDATION)
     Route: 042
     Dates: start: 20190315
  22. METHOTREXATE SODIUM. [Suspect]
     Active Substance: METHOTREXATE SODIUM
     Dosage: DAY 22-15 MG (CONSOLIDATION)
     Route: 037
     Dates: start: 20190315

REACTIONS (1)
  - Febrile neutropenia [Recovered/Resolved]

NARRATIVE: CASE EVENT DATE: 20190317
